FAERS Safety Report 23144757 (Version 1)
Quarter: 2023Q4

REPORT INFORMATION
  Report Type: Spontaneous
  Country: US (occurrence: US)
  Receive Date: 20231103
  Receipt Date: 20231103
  Transmission Date: 20240110
  Serious: No
  Sender: FDA-Public Use
  Company Number: US-PFIZER INC-202300348218

PATIENT
  Age: 61 Year
  Sex: Female

DRUGS (10)
  1. PAXLOVID [Suspect]
     Active Substance: NIRMATRELVIR\RITONAVIR
     Indication: COVID-19 treatment
     Dosage: UNK
     Dates: start: 20230929, end: 20231003
  2. ACETAMINOPHEN [Concomitant]
     Active Substance: ACETAMINOPHEN
     Dosage: UNK
     Dates: start: 20070501
  3. PEPCID [Concomitant]
     Active Substance: FAMOTIDINE
     Dosage: PEPCID MAXIMUM STRENGTH 20 MG
  4. VITAMIN D3 [Concomitant]
     Active Substance: CHOLECALCIFEROL
     Dosage: VITAMIN D 3 DROPS, PURE ENCAPSULATION
  5. DIETARY SUPPLEMENT\HERBALS\MILK THISTLE [Concomitant]
     Active Substance: MILK THISTLE
     Dosage: ECLECTIC INSTITUTE
  6. MINERALS\VITAMINS [Concomitant]
     Active Substance: MINERALS\VITAMINS
     Dosage: MAXXUM 3 MULTIVITAMIN AND MINERAL SUPPLEMENT
  7. ST. JOHN^S WORT [Concomitant]
     Active Substance: ST. JOHN^S WORT
     Dosage: NATURE^S WAY
     Dates: start: 20150101, end: 20231001
  8. POTASSIUM [Concomitant]
     Active Substance: POTASSIUM
     Dosage: WHOLE FOODS MARKET 365
  9. DIGEST GOLD + PROBIOTICS [Concomitant]
     Dosage: ENZYMEDICA
  10. ACIDOPHILUS BIFIDUS COMPLEX [Concomitant]
     Dosage: NATURAL FACTORS

REACTIONS (3)
  - Reaction to excipient [Recovered/Resolved]
  - Diarrhoea [Recovered/Resolved]
  - Gastrointestinal disorder [Recovered/Resolved]

NARRATIVE: CASE EVENT DATE: 20230930
